FAERS Safety Report 4549383-2 (Version None)
Quarter: 2005Q1

REPORT INFORMATION
  Report Type: 
  Country: None (occurrence: None)
  Receive Date: 20050106
  Receipt Date: 20041228
  Transmission Date: 20050727
  Serious: Yes (Hospitalization)
  Sender: FDA-Public Use
  Company Number: 2004-12-1272

PATIENT
  Age: 83 Year
  Sex: Male

DRUGS (4)
  1. ODYNE (FLUTAMIDE) TABLETS LIKE EULEKIN CAPSULES [Suspect]
     Indication: PROSTATE CANCER STAGE IV
     Dosage: 375 MG QD
     Dates: start: 20041005
  2. LOSARTAN POTASSIUM [Concomitant]
  3. TAMSULOSIN HYDROCHLORIDE [Concomitant]
  4. URSODEOXYCHOLIC ACID [Concomitant]

REACTIONS (1)
  - UNEVALUABLE EVENT [None]
